FAERS Safety Report 7446109-X (Version None)
Quarter: 2011Q2

REPORT INFORMATION
  Report Type: 
  Country: None (occurrence: None)
  Receive Date: 20110429
  Receipt Date: 20110422
  Transmission Date: 20111010
  Serious: Yes (Hospitalization)
  Sender: FDA-Public Use
  Company Number: A0897101A

PATIENT
  Age: 62 Year
  Sex: Male
  Weight: 133.2 kg

DRUGS (5)
  1. AMARYL [Concomitant]
  2. CELEBREX [Concomitant]
  3. ACCUPRIL [Concomitant]
  4. AVANDIA [Suspect]
     Dosage: 4MG PER DAY
     Route: 048
     Dates: start: 20000413, end: 20050607
  5. NORCO [Concomitant]

REACTIONS (3)
  - ATRIOVENTRICULAR BLOCK SECOND DEGREE [None]
  - HYPERTENSION [None]
  - ARTERIOSCLEROSIS [None]
